FAERS Safety Report 11992048 (Version 1)
Quarter: 2016Q1

REPORT INFORMATION
  Report Type: Spontaneous
  Country: US (occurrence: None)
  Receive Date: 20160202
  Receipt Date: 20160202
  Transmission Date: 20160526
  Serious: No
  Sender: FDA-Public Use
  Company Number: None

PATIENT
  Sex: Male

DRUGS (1)
  1. HUMALOG [Suspect]
     Active Substance: INSULIN LISPRO

REACTIONS (9)
  - Treatment noncompliance [None]
  - Feeling jittery [None]
  - Stress [None]
  - Diabetes mellitus inadequate control [None]
  - Blood glucose increased [None]
  - Renal transplant [None]
  - Hyperhidrosis [None]
  - Malaise [None]
  - Therapy cessation [None]
